FAERS Safety Report 4818397-7 (Version None)
Quarter: 2005Q4

REPORT INFORMATION
  Report Type: 
  Country: None (occurrence: None)
  Receive Date: 20051031
  Receipt Date: 20051011
  Transmission Date: 20060501
  Serious: Yes (Death)
  Sender: FDA-Public Use
  Company Number: 051017-0001031

PATIENT
  Age: 34 Year
  Sex: Male

DRUGS (1)
  1. METHAMPHETAMINE HCL [Suspect]
     Dosage: 0.25 OZ; 1X; PO
     Route: 048
     Dates: end: 20040101

REACTIONS (8)
  - AGITATION [None]
  - CARDIAC ARREST [None]
  - DRUG ABUSER [None]
  - DRUG SCREEN POSITIVE [None]
  - FOREIGN BODY TRAUMA [None]
  - HEART RATE INCREASED [None]
  - OVERDOSE [None]
  - REFUSAL OF TREATMENT BY PATIENT [None]
